FAERS Safety Report 7083848-7 (Version None)
Quarter: 2010Q4

REPORT INFORMATION
  Report Type: 
  Country: None (occurrence: None)
  Receive Date: 20101025
  Receipt Date: 20101004
  Transmission Date: 20110411
  Serious: Yes (Death, Hospitalization)
  Sender: FDA-Public Use
  Company Number: BE201006001296

PATIENT
  Age: 60 Year
  Sex: Male
  Weight: 89.3 kg

DRUGS (8)
  1. ETOPOSIDE [Suspect]
     Indication: NON-SMALL CELL LUNG CANCER STAGE III
     Dosage: 50 MG/M2, DAYS 1-5 EVERY 4 WEEKS, INTRAVENOUS
     Route: 042
     Dates: start: 20100419
  2. CISPLATIN [Suspect]
     Indication: NON-SMALL CELL LUNG CANCER STAGE III
     Dosage: 50 MG/M2, DAYS 1+8 EVERY 4 WEEKS, INTRAVENOUS
     Route: 042
     Dates: start: 20100419
  3. RADIATION (RADIATION) UNKNOWN [Suspect]
     Indication: NON-SMALL CELL LUNG CANCER STAGE III
     Dosage: 2 GY X 33, DAYS 1 AND 8
     Dates: start: 20100419
  4. OMEPRAZOLE [Concomitant]
  5. PARACODIN (DIHYDROCODEINE THIOCYANATE) [Concomitant]
  6. PRIMPERAN /SCH/ (METOCLOPRAMIDE HYDROCHLORIDE) [Concomitant]
  7. LIDOCAINE HCL (LIDOCAINE HYDROCHLORIDE) [Concomitant]
  8. DIFENHYDRAMIN (DIPHENHYDRAMINE) [Concomitant]

REACTIONS (25)
  - ACTIVATED PARTIAL THROMBOPLASTIN TIME PROLONGED [None]
  - ASPERGILLOSIS [None]
  - BLOOD ALBUMIN DECREASED [None]
  - BLOOD ALKALINE PHOSPHATASE INCREASED [None]
  - BLOOD BICARBONATE DECREASED [None]
  - BLOOD CALCIUM DECREASED [None]
  - BLOOD CHLORIDE DECREASED [None]
  - BLOOD CREATININE INCREASED [None]
  - BLOOD GLUCOSE INCREASED [None]
  - BLOOD LACTATE DEHYDROGENASE INCREASED [None]
  - BLOOD SODIUM DECREASED [None]
  - ENTEROCOCCUS TEST POSITIVE [None]
  - FEBRILE NEUTROPENIA [None]
  - GAMMA-GLUTAMYLTRANSFERASE INCREASED [None]
  - HAEMATOCRIT DECREASED [None]
  - HAEMOGLOBIN DECREASED [None]
  - LUNG CONSOLIDATION [None]
  - LYMPHOCYTE PERCENTAGE DECREASED [None]
  - MEAN CELL HAEMOGLOBIN DECREASED [None]
  - PNEUMONIA [None]
  - PROTHROMBIN TIME PROLONGED [None]
  - PULMONARY FIBROSIS [None]
  - PULMONARY OEDEMA [None]
  - RED BLOOD CELL COUNT DECREASED [None]
  - RED CELL DISTRIBUTION WIDTH INCREASED [None]
